FAERS Safety Report 5856065-3 (Version None)
Quarter: 2008Q3

REPORT INFORMATION
  Report Type: 
  Country: None (occurrence: None)
  Receive Date: 20080821
  Receipt Date: 20080806
  Transmission Date: 20090109
  Serious: Yes (Other)
  Sender: FDA-Public Use
  Company Number: SPI200800406

PATIENT
  Age: 38 Year
  Sex: Female
  Weight: 61.2 kg

DRUGS (1)
  1. AMTIZA(LUBIPROSTONE) CAPSULE, 24MCG [Suspect]
     Indication: CONSTIPATION
     Dosage: 24MCG, ORAL
     Route: 048
     Dates: start: 20080501, end: 20080701

REACTIONS (8)
  - ABDOMINAL DISTENSION [None]
  - ABDOMINAL PAIN [None]
  - BACK PAIN [None]
  - CHEST DISCOMFORT [None]
  - FLATULENCE [None]
  - GALLBLADDER DISORDER [None]
  - GALLBLADDER PAIN [None]
  - NAUSEA [None]
